FAERS Safety Report 6156548-5 (Version None)
Quarter: 2009Q2

REPORT INFORMATION
  Report Type: 
  Country: None (occurrence: None)
  Receive Date: 20090416
  Receipt Date: 20090331
  Transmission Date: 20091009
  Serious: Yes (Other)
  Sender: FDA-Public Use
  Company Number: BR-BAYER-200915039LA

PATIENT

DRUGS (1)
  1. MIRENA [Suspect]
     Indication: DRUG USE FOR UNKNOWN INDICATION
     Dosage: FREQUENCY: CONTINUOUS
     Route: 064

REACTIONS (2)
  - HEART DISEASE CONGENITAL [None]
  - MATERNAL DRUGS AFFECTING FOETUS [None]
